FAERS Safety Report 17144920 (Version 1)
Quarter: 2019Q4

REPORT INFORMATION
  Report Type: Spontaneous
  Country: US (occurrence: US)
  Receive Date: 20191120
  Receipt Date: 20191120
  Transmission Date: 20200122
  Serious: No
  Sender: FDA-Public Use
  Company Number: None

PATIENT
  Age: 53 Year
  Sex: Female

DRUGS (7)
  1. SIMVASTATIN. [Concomitant]
     Active Substance: SIMVASTATIN
  2. ACTIGALL [Concomitant]
     Active Substance: URSODIOL
  3. METFORMIN [Concomitant]
     Active Substance: METFORMIN HYDROCHLORIDE
  4. LEVOTHYROXIN [Concomitant]
     Active Substance: LEVOTHYROXINE
  5. VITAMIN B-6 [Concomitant]
     Active Substance: PYRIDOXINE
  6. VITAMIN C [Concomitant]
     Active Substance: ASCORBIC ACID
  7. OCALIVA [Suspect]
     Active Substance: OBETICHOLIC ACID
     Indication: PRIMARY BILIARY CHOLANGITIS
     Route: 048
     Dates: start: 20190413

REACTIONS (5)
  - Arthralgia [None]
  - Therapy cessation [None]
  - Swelling [None]
  - Pruritus [None]
  - Exostosis [None]

NARRATIVE: CASE EVENT DATE: 20191103
